FAERS Safety Report 13585375 (Version 1)
Quarter: 2017Q2

REPORT INFORMATION
  Report Type: Spontaneous
  Country: IT (occurrence: IT)
  Receive Date: 20170526
  Receipt Date: 20170526
  Transmission Date: 20170830
  Serious: Yes (Hospitalization)
  Sender: FDA-Public Use
  Company Number: IT-BAYER-2017-095993

PATIENT
  Age: 75 Year
  Sex: Male

DRUGS (7)
  1. EUTIROX [Concomitant]
     Active Substance: LEVOTHYROXINE SODIUM
     Indication: HYPOTHYROIDISM
     Route: 048
  2. CONGESCOR [Concomitant]
     Active Substance: BISOPROLOL
     Route: 048
  3. LASIX [Suspect]
     Active Substance: FUROSEMIDE
     Dosage: 250 MG, QD
     Route: 048
  4. LANSOX [Concomitant]
     Active Substance: LANSOPRAZOLE
     Route: 048
  5. TORVAST [Concomitant]
     Active Substance: ATORVASTATIN
     Route: 048
  6. CARDIOASPIRIN 100 MG [Suspect]
     Active Substance: ASPIRIN
     Route: 048
  7. CORDARONE [Concomitant]
     Active Substance: AMIODARONE HYDROCHLORIDE
     Route: 048

REACTIONS (3)
  - Drug interaction [Recovering/Resolving]
  - Dysuria [Recovering/Resolving]
  - Haematuria [Recovering/Resolving]

NARRATIVE: CASE EVENT DATE: 20170306
